FAERS Safety Report 18751325 (Version 4)
Quarter: 2021Q2

REPORT INFORMATION
  Report Type: Other
  Country: US (occurrence: US)
  Receive Date: 20210118
  Receipt Date: 20210401
  Transmission Date: 20210717
  Serious: Yes (Other)
  Sender: FDA-Public Use
  Company Number: US-ROCHE-2751154

PATIENT
  Age: 44 Year
  Sex: Female
  Weight: 78.54 kg

DRUGS (1)
  1. OCREVUS [Suspect]
     Active Substance: OCRELIZUMAB
     Indication: RELAPSING-REMITTING MULTIPLE SCLEROSIS
     Dosage: 30 MG/ML?PRESCRIBED WITH 300 MG DAY 1 AND DAY 15 THEN 600 MG EVERY 6 MONTHS?DATE OF TREATMENT: 03/JA
     Route: 042
     Dates: start: 202001

REACTIONS (2)
  - COVID-19 pneumonia [Recovered/Resolved]
  - Restless legs syndrome [Not Recovered/Not Resolved]

NARRATIVE: CASE EVENT DATE: 20201125
